FAERS Safety Report 18127305 (Version 1)
Quarter: 2020Q3

REPORT INFORMATION
  Report Type: Other
  Country: IT (occurrence: IT)
  Receive Date: 20200810
  Receipt Date: 20200810
  Transmission Date: 20201103
  Serious: Yes (Other)
  Sender: FDA-Public Use
  Company Number: IT-CELLTRION INC.-2020IT024926

PATIENT

DRUGS (1)
  1. REMSIMA [Suspect]
     Active Substance: INFLIXIMAB
     Indication: COLITIS ULCERATIVE
     Dosage: 310 MG, CYCLIC
     Route: 042
     Dates: start: 20180301, end: 20180601

REACTIONS (4)
  - Gastroenteritis [Recovering/Resolving]
  - Stenosis [Recovering/Resolving]
  - Gastrointestinal endoscopic therapy [Recovering/Resolving]
  - Drug ineffective [Recovering/Resolving]

NARRATIVE: CASE EVENT DATE: 20180601
